FAERS Safety Report 6087993-4 (Version None)
Quarter: 2009Q1

REPORT INFORMATION
  Report Type: 
  Country: None (occurrence: None)
  Receive Date: 20090219
  Receipt Date: 20090209
  Transmission Date: 20090719
  Serious: Yes (Hospitalization)
  Sender: FDA-Public Use
  Company Number: 174721

PATIENT
  Age: 44 Year
  Sex: Female

DRUGS (6)
  1. METHYLENE BLUE INJECTION, USP (METHYLTHIOINIUM CHLORIDE) [Suspect]
     Indication: BIOPSY LYMPH GLAND
     Dosage: SUBCUTANEOUS
     Route: 058
  2. PROPOFOL [Concomitant]
  3. SUCCINYL CHOLINE [Concomitant]
  4. ROCURONIUM BROMIDE [Concomitant]
  5. MIDAZOLAM HCL [Concomitant]
  6. FENTANYL TRANSDERMAL SYSTEM [Concomitant]

REACTIONS (6)
  - BLOOD CREATINE PHOSPHOKINASE MB INCREASED [None]
  - HYPERSENSITIVITY [None]
  - HYPERTENSION [None]
  - PULMONARY OEDEMA [None]
  - TACHYCARDIA [None]
  - TROPONIN INCREASED [None]
